FAERS Safety Report 12245906 (Version 1)
Quarter: 2016Q2

REPORT INFORMATION
  Report Type: Spontaneous
  Country: CA (occurrence: None)
  Receive Date: 20160406
  Receipt Date: 20160406
  Transmission Date: 20160815
  Serious: Yes (Life-Threatening)
  Sender: FDA-Public Use
  Company Number: CA-ALSI-201600077

PATIENT
  Age: 3 Month
  Weight: 3.7 kg

DRUGS (3)
  1. OXYGEN. [Suspect]
     Active Substance: OXYGEN
     Indication: HYPOXIA
     Dosage: 1 | ONCE A MINUTE RESPIRATORY
     Route: 055
  2. REMIFENTANIL [Concomitant]
     Active Substance: REMIFENTANIL
  3. PROPOFOL. [Concomitant]
     Active Substance: PROPOFOL

REACTIONS (5)
  - Cardiac arrest [None]
  - Pneumothorax [None]
  - Hypoxia [None]
  - Pulseless electrical activity [None]
  - Bradycardia [None]
